FAERS Safety Report 5533620-1 (Version None)
Quarter: 2007Q4

REPORT INFORMATION
  Report Type: 
  Country: None (occurrence: None)
  Receive Date: 20071128
  Receipt Date: 20071120
  Transmission Date: 20080405
  Serious: Yes (Hospitalization)
  Sender: FDA-Public Use
  Company Number: 2007BI024642

PATIENT
  Age: 56 Year
  Sex: Female

DRUGS (2)
  1. AVONEX [Suspect]
     Indication: MULTIPLE SCLEROSIS
     Dosage: 30 UG;QW;IM
     Route: 030
     Dates: start: 19970101, end: 20010101
  2. AVONEX [Suspect]
     Dosage: 30 UG; QW; IM
     Route: 030
     Dates: start: 20071009

REACTIONS (2)
  - BURSITIS [None]
  - FALL [None]
